FAERS Safety Report 6876965-5 (Version None)
Quarter: 2010Q3

REPORT INFORMATION
  Report Type: 
  Country: None (occurrence: None)
  Receive Date: 20100727
  Receipt Date: 20100720
  Transmission Date: 20110219
  Serious: Yes (Other)
  Sender: FDA-Public Use
  Company Number: US-ELI_LILLY_AND_COMPANY-US201007004973

PATIENT
  Sex: Male

DRUGS (3)
  1. HUMALOG [Suspect]
     Indication: DIABETES MELLITUS
     Dosage: 18 U, UNK
  2. HUMALOG [Suspect]
     Dosage: 28 U, UNK
  3. LANTUS [Concomitant]
     Indication: DIABETES MELLITUS
     Dosage: 44 U, UNK

REACTIONS (2)
  - MEMORY IMPAIRMENT [None]
  - TRANSIENT ISCHAEMIC ATTACK [None]
